FAERS Safety Report 16312399 (Version 11)
Quarter: 2021Q4

REPORT INFORMATION
  Report Type: Spontaneous
  Country: US (occurrence: US)
  Receive Date: 20190515
  Receipt Date: 20211028
  Transmission Date: 20220303
  Serious: No
  Sender: FDA-Public Use
  Company Number: US-BIOGEN-2019BI00737410

PATIENT
  Age: 50 Year
  Sex: Female

DRUGS (3)
  1. TYSABRI [Suspect]
     Active Substance: NATALIZUMAB
     Indication: Multiple sclerosis
     Dosage: INFUSED OVER 1 HOUR
     Route: 042
     Dates: start: 20190326
  2. BACLOFEN [Concomitant]
     Active Substance: BACLOFEN
     Indication: Muscle spasticity
     Route: 065
  3. GABAPENTIN [Concomitant]
     Active Substance: GABAPENTIN
     Indication: Nervousness
     Route: 065

REACTIONS (34)
  - Dehydration [Not Recovered/Not Resolved]
  - Cognitive disorder [Not Recovered/Not Resolved]
  - Neuralgia [Not Recovered/Not Resolved]
  - Pain [Not Recovered/Not Resolved]
  - Contusion [Not Recovered/Not Resolved]
  - Muscular weakness [Not Recovered/Not Resolved]
  - Haemorrhage [Not Recovered/Not Resolved]
  - Constipation [Not Recovered/Not Resolved]
  - Asthenia [Not Recovered/Not Resolved]
  - Palpitations [Unknown]
  - Abdominal distension [Unknown]
  - Dysuria [Unknown]
  - Feeling abnormal [Unknown]
  - Gastrointestinal disorder [Unknown]
  - Skin discolouration [Unknown]
  - Multiple sclerosis relapse [Unknown]
  - Neck pain [Unknown]
  - Malaise [Unknown]
  - Ear pain [Unknown]
  - Narcolepsy [Unknown]
  - Breath odour [Unknown]
  - Musculoskeletal disorder [Unknown]
  - Head injury [Unknown]
  - Mobility decreased [Recovered/Resolved]
  - COVID-19 [Recovered/Resolved]
  - Chromaturia [Recovered/Resolved]
  - Negative thoughts [Recovered/Resolved]
  - Fall [Recovered/Resolved]
  - Fatigue [Not Recovered/Not Resolved]
  - Anxiety [Not Recovered/Not Resolved]
  - Hypertension [Unknown]
  - Platelet count decreased [Unknown]
  - Vaginal infection [Unknown]
  - Headache [Unknown]

NARRATIVE: CASE EVENT DATE: 20190101
